FAERS Safety Report 13541674 (Version 4)
Quarter: 2018Q2

REPORT INFORMATION
  Report Type: Spontaneous
  Country: US (occurrence: US)
  Receive Date: 20170512
  Receipt Date: 20180426
  Transmission Date: 20180711
  Serious: Yes (Other)
  Sender: FDA-Public Use
  Company Number: US-SA-2016SA172680

PATIENT
  Age: 51 Year
  Sex: Female

DRUGS (8)
  1. DONEPEZIL. [Concomitant]
     Active Substance: DONEPEZIL
     Route: 065
  2. NITROFURANTOIN. [Concomitant]
     Active Substance: NITROFURANTOIN
     Route: 065
  3. ZOLOFT [Concomitant]
     Active Substance: SERTRALINE HYDROCHLORIDE
     Route: 065
  4. AUBAGIO [Suspect]
     Active Substance: TERIFLUNOMIDE
     Indication: MULTIPLE SCLEROSIS
     Route: 048
     Dates: start: 20160312
  5. AUBAGIO [Suspect]
     Active Substance: TERIFLUNOMIDE
     Indication: MULTIPLE SCLEROSIS
     Route: 048
     Dates: start: 20170228
  6. CLARITIN-D NOS [Concomitant]
     Active Substance: LORATADINE\PSEUDOEPHEDRINE SULFATE
     Route: 065
  7. CHANTIX [Concomitant]
     Active Substance: VARENICLINE TARTRATE
     Route: 065
  8. AUBAGIO [Suspect]
     Active Substance: TERIFLUNOMIDE
     Indication: MULTIPLE SCLEROSIS
     Route: 048
     Dates: start: 20160218

REACTIONS (14)
  - Sleep disorder [Unknown]
  - Memory impairment [Unknown]
  - Paraesthesia [Unknown]
  - Hypoaesthesia [Unknown]
  - Cerebral disorder [Unknown]
  - Pain [Unknown]
  - Paraesthesia [Unknown]
  - Fatigue [Unknown]
  - Anxiety [Unknown]
  - Asthenia [Unknown]
  - Mental impairment [Unknown]
  - Disturbance in attention [Unknown]
  - Fatigue [Unknown]
  - Memory impairment [Unknown]

NARRATIVE: CASE EVENT DATE: 20160913
